FAERS Safety Report 9457831 (Version 1)
Quarter: 2013Q3

REPORT INFORMATION
  Report Type: Spontaneous
  Country: CN (occurrence: CN)
  Receive Date: 20130814
  Receipt Date: 20130814
  Transmission Date: 20140515
  Serious: Yes (Hospitalization)
  Sender: FDA-Public Use
  Company Number: CN-JNJFOC-20130804421

PATIENT
  Age: 27 Year
  Sex: Male

DRUGS (5)
  1. RISPERDAL [Suspect]
     Indication: SCHIZOPHRENIA
     Route: 048
     Dates: start: 200808
  2. RISPERDAL [Suspect]
     Indication: SCHIZOPHRENIA
     Route: 048
     Dates: start: 200908
  3. RISPERDAL [Suspect]
     Indication: SCHIZOPHRENIA
     Dosage: 1.5 TABLETS AT NOON AND 2 TABLETS AT NIGHT
     Route: 048
     Dates: start: 20130723
  4. RISPERDAL [Suspect]
     Indication: SCHIZOPHRENIA
     Route: 048
     Dates: start: 200608
  5. RISPERDAL [Suspect]
     Indication: SCHIZOPHRENIA
     Dosage: 1 MG AT NOON AND 1.5 MG AT NIGHT
     Route: 048
     Dates: start: 2009

REACTIONS (9)
  - Self injurious behaviour [Unknown]
  - Dysphoria [Recovering/Resolving]
  - Abnormal dreams [Recovering/Resolving]
  - Schizophrenia [Recovering/Resolving]
  - Insomnia [Recovering/Resolving]
  - Middle insomnia [Recovering/Resolving]
  - Confusional state [Recovering/Resolving]
  - Treatment noncompliance [Unknown]
  - Poor quality drug administered [Unknown]
